FAERS Safety Report 21983537 (Version 1)
Quarter: 2023Q1

REPORT INFORMATION
  Report Type: Spontaneous
  Country: BR (occurrence: BR)
  Receive Date: 20230213
  Receipt Date: 20230213
  Transmission Date: 20230418
  Serious: Yes (Disabling)
  Sender: FDA-Public Use
  Company Number: BR-ABBVIE-4301979

PATIENT
  Age: 51 Year
  Sex: Male
  Weight: 85 kg

DRUGS (3)
  1. RINVOQ [Suspect]
     Active Substance: UPADACITINIB
     Indication: Rheumatoid arthritis
     Route: 048
     Dates: start: 202209
  2. Golimumab 50 mg [Concomitant]
     Indication: Rheumatoid arthritis
     Route: 030
     Dates: start: 202209
  3. CEPHALEXIN [Concomitant]
     Active Substance: CEPHALEXIN
     Indication: Rheumatoid arthritis
     Dosage: 1 TABLET
     Route: 048

REACTIONS (4)
  - Muscular weakness [Not Recovered/Not Resolved]
  - Musculoskeletal stiffness [Not Recovered/Not Resolved]
  - Rheumatoid arthritis [Not Recovered/Not Resolved]
  - Peripheral swelling [Not Recovered/Not Resolved]

NARRATIVE: CASE EVENT DATE: 20230101
